FAERS Safety Report 10141882 (Version 5)
Quarter: 2014Q3

REPORT INFORMATION
  Report Type: Report from Study
  Country: US (occurrence: US)
  Receive Date: 20140429
  Receipt Date: 20140828
  Transmission Date: 20150326
  Serious: Yes (Life-Threatening, Hospitalization, Other)
  Sender: FDA-Public Use
  Company Number: US-MERCK-1404USA014202

PATIENT
  Age: 65 Year
  Sex: Male
  Weight: 92.7 kg

DRUGS (14)
  1. PRINIVIL [Concomitant]
     Active Substance: LISINOPRIL
  2. ZOFRAN [Concomitant]
     Active Substance: ONDANSETRON HYDROCHLORIDE
  3. DULCOLAX [Concomitant]
     Active Substance: BISACODYL OR DOCUSATE SODIUM
  4. TEMODAR [Suspect]
     Active Substance: TEMOZOLOMIDE
     Dosage: 315 MG/M2, QD
     Route: 048
     Dates: start: 20140417, end: 20140514
  5. ATORVASTATIN [Concomitant]
     Active Substance: ATORVASTATIN
  6. NYSTATIN. [Concomitant]
     Active Substance: NYSTATIN
  7. OMEPRAZOLE. [Concomitant]
     Active Substance: OMEPRAZOLE
     Dosage: UNK
     Dates: start: 201308
  8. ATENOLOL. [Concomitant]
     Active Substance: ATENOLOL
  9. HEXADROL [Concomitant]
     Active Substance: DEXAMETHASONE
     Dosage: UNK
     Dates: start: 20140318
  10. DAPSONE. [Concomitant]
     Active Substance: DAPSONE
  11. KEPPRA [Concomitant]
     Active Substance: LEVETIRACETAM
  12. TEMODAR [Suspect]
     Active Substance: TEMOZOLOMIDE
     Indication: GLIOBLASTOMA
     Dosage: 150 MG/M2, CYCLICAL 7 DAYS ON 7 DAYS OFF
     Route: 048
     Dates: start: 20140320, end: 20140416
  13. MACITENTAN [Suspect]
     Active Substance: MACITENTAN
     Indication: GLIOBLASTOMA
     Dosage: 150 MG, QD
     Route: 048
     Dates: start: 20140212, end: 20140714
  14. LEVETIRACETAM. [Concomitant]
     Active Substance: LEVETIRACETAM
     Dosage: UNK
     Dates: start: 201308

REACTIONS (14)
  - Blood bilirubin abnormal [Unknown]
  - Fall [Not Recovered/Not Resolved]
  - Gait disturbance [Not Recovered/Not Resolved]
  - Blood creatinine decreased [Unknown]
  - Upper respiratory tract congestion [Not Recovered/Not Resolved]
  - Cough [Not Recovered/Not Resolved]
  - Lymphocyte count decreased [Unknown]
  - Lymphocyte count decreased [Unknown]
  - Lymphocyte count decreased [Recovered/Resolved]
  - Blood glucose increased [Unknown]
  - Nausea [Not Recovered/Not Resolved]
  - Lymphocyte count decreased [Recovered/Resolved]
  - Muscular weakness [Not Recovered/Not Resolved]
  - Lymphocyte count decreased [Recovered/Resolved]

NARRATIVE: CASE EVENT DATE: 20140412
